FAERS Safety Report 23690474 (Version 2)
Quarter: 2024Q2

REPORT INFORMATION
  Report Type: Spontaneous
  Country: JP (occurrence: JP)
  Receive Date: 20240401
  Receipt Date: 20240406
  Transmission Date: 20240716
  Serious: Yes (Other)
  Sender: FDA-Public Use
  Company Number: JP-ABBVIE-5693868

PATIENT
  Age: 69 Year
  Sex: Female

DRUGS (6)
  1. ALPHAGAN P [Suspect]
     Active Substance: BRIMONIDINE TARTRATE
     Indication: Glaucoma
     Dosage: OPHTHALMIC SOLUTION 0.1%; BOTH EYES?FORM STRENGTH WAS 0.2%
     Route: 047
     Dates: start: 201307, end: 20240313
  2. XALATAN [Concomitant]
     Active Substance: LATANOPROST
     Indication: Glaucoma
     Dosage: EYE DROPS BOTH EYES
     Route: 047
     Dates: end: 20240313
  3. XALATAN [Concomitant]
     Active Substance: LATANOPROST
     Indication: Glaucoma
     Dosage: EYE DROPS BOTH EYES
     Route: 047
  4. Rinderon [Concomitant]
     Indication: Product used for unknown indication
     Dosage: EYE OINTMENT
     Route: 047
  5. PATANOL [Concomitant]
     Active Substance: OLOPATADINE HYDROCHLORIDE
     Indication: Conjunctivitis allergic
     Dosage: TIME INTERVAL: AS NECESSARY: OPHTHALMIC SOLUTION?1 GTT, BOTH EYES
     Route: 047
     Dates: start: 20240313
  6. FLUOROMETHOLONE [Concomitant]
     Active Substance: FLUOROMETHOLONE
     Indication: Product used for unknown indication
     Dosage: OPHTHALMIC SUSPENSION
     Route: 047

REACTIONS (3)
  - Corneal opacity [Not Recovered/Not Resolved]
  - Blepharitis [Not Recovered/Not Resolved]
  - Corneal opacity [Unknown]

NARRATIVE: CASE EVENT DATE: 20200901
